FAERS Safety Report 9959774 (Version 1)
Quarter: 2014Q1

REPORT INFORMATION
  Report Type: Report from Study
  Country: US (occurrence: US)
  Receive Date: 20140305
  Receipt Date: 20140305
  Transmission Date: 20141002
  Serious: No
  Sender: FDA-Public Use
  Company Number: US-ABBVIE-13P-163-1105938-00

PATIENT
  Age: 36 Year
  Sex: Male

DRUGS (5)
  1. HUMIRA [Suspect]
     Indication: CROHN^S DISEASE
     Dates: start: 201303
  2. XYREM [Concomitant]
     Indication: SEDATIVE THERAPY
     Dosage: AT 11 PM AND 3 AM
  3. NUVAGEL [Concomitant]
     Indication: CENTRAL NERVOUS SYSTEM STIMULATION
     Dosage: 250 DAILY IN AM
  4. ZEGERID [Concomitant]
     Indication: DYSPEPSIA
     Dosage: 40MG DAILY
  5. FERROUS SULFATE [Concomitant]
     Indication: PRODUCT USED FOR UNKNOWN INDICATION

REACTIONS (1)
  - Arthralgia [Not Recovered/Not Resolved]
